FAERS Safety Report 8053996-3 (Version None)
Quarter: 2012Q1

REPORT INFORMATION
  Report Type: 
  Country: None (occurrence: None)
  Receive Date: 20120118
  Receipt Date: 20120116
  Transmission Date: 20120608
  Serious: Yes (Hospitalization)
  Sender: FDA-Public Use
  Company Number: US-AMGEN-USASP2011020992

PATIENT
  Sex: Female

DRUGS (1)
  1. NPLATE [Suspect]
     Indication: IDIOPATHIC THROMBOCYTOPENIC PURPURA
     Dosage: 5 MUG/KG, UNK
     Dates: start: 20110113, end: 20110420

REACTIONS (4)
  - FALL [None]
  - HOSPITALISATION [None]
  - PLATELET COUNT DECREASED [None]
  - GENERAL PHYSICAL HEALTH DETERIORATION [None]
